FAERS Safety Report 10251200 (Version 1)
Quarter: 2014Q2

REPORT INFORMATION
  Report Type: Spontaneous
  Country: FR (occurrence: FR)
  Receive Date: 20140620
  Receipt Date: 20140620
  Transmission Date: 20141212
  Serious: Yes (Death, Life-Threatening, Hospitalization, Disabling, Other)
  Sender: FDA-Public Use
  Company Number: FR-ASTRAZENECA-2014SE45321

PATIENT
  Age: 29977 Day
  Sex: Male

DRUGS (2)
  1. BRILIQUE [Suspect]
     Route: 048
     Dates: end: 20140430
  2. KARDEGIC [Interacting]
     Route: 048
     Dates: end: 20140430

REACTIONS (7)
  - Drug interaction [Fatal]
  - Subdural haematoma [Fatal]
  - Subarachnoid haemorrhage [Fatal]
  - Fall [Fatal]
  - Head injury [Fatal]
  - Loss of consciousness [Not Recovered/Not Resolved]
  - Hemiparesis [Not Recovered/Not Resolved]
